FAERS Safety Report 16584430 (Version 2)
Quarter: 2019Q3

REPORT INFORMATION
  Report Type: Report from Study
  Country: CA (occurrence: CA)
  Receive Date: 20190717
  Receipt Date: 20190724
  Transmission Date: 20191004
  Serious: Yes (Other)
  Sender: FDA-Public Use
  Company Number: CA-ROCHE-2357176

PATIENT
  Age: 68 Year
  Sex: Male
  Weight: 77 kg

DRUGS (10)
  1. ACTEMRA [Suspect]
     Active Substance: TOCILIZUMAB
     Indication: OFF LABEL USE
  2. FUROSEMIDE. [Concomitant]
     Active Substance: FUROSEMIDE
     Indication: OFF LABEL USE
  3. ACTEMRA [Suspect]
     Active Substance: TOCILIZUMAB
     Indication: RHEUMATOID ARTHRITIS
     Route: 042
     Dates: start: 20190321
  4. SALBUTAMOL [Concomitant]
     Active Substance: ALBUTEROL
     Indication: OFF LABEL USE
  5. SINGULAIR [Concomitant]
     Active Substance: MONTELUKAST SODIUM
     Indication: OFF LABEL USE
  6. PERINDOPRIL [Concomitant]
     Active Substance: PERINDOPRIL
     Indication: OFF LABEL USE
  7. NITRO [GLYCERYL TRINITRATE] [Concomitant]
     Active Substance: NITROGLYCERIN
     Indication: OFF LABEL USE
     Dosage: PM
     Route: 065
  8. SIMVASTATIN. [Concomitant]
     Active Substance: SIMVASTATIN
     Indication: OFF LABEL USE
  9. PLAQUENIL [Concomitant]
     Active Substance: HYDROXYCHLOROQUINE SULFATE
     Indication: OFF LABEL USE
  10. METOPROLOL. [Concomitant]
     Active Substance: METOPROLOL
     Indication: OFF LABEL USE

REACTIONS (3)
  - Product use issue [Unknown]
  - Off label use [Unknown]
  - Intervertebral disc protrusion [Unknown]

NARRATIVE: CASE EVENT DATE: 20190614
